FAERS Safety Report 8553979-0 (Version None)
Quarter: 2012Q3

REPORT INFORMATION
  Report Type: 
  Country: None (occurrence: None)
  Receive Date: 20120731
  Receipt Date: 20120716
  Transmission Date: 20120928
  Serious: Yes (Other)
  Sender: FDA-Public Use
  Company Number: NE-WATSON-2012-12950

PATIENT
  Age: 50 Year
  Sex: Female

DRUGS (1)
  1. ATENOLOL [Suspect]
     Indication: HYPERTENSION
     Dosage: 50 MG, DAILY
     Route: 065
     Dates: start: 20070901

REACTIONS (1)
  - SEXUAL DYSFUNCTION [None]
